FAERS Safety Report 14457196 (Version 1)
Quarter: 2018Q1

REPORT INFORMATION
  Report Type: Spontaneous
  Country: US (occurrence: US)
  Receive Date: 20180127
  Receipt Date: 20180127
  Transmission Date: 20180509
  Serious: Yes (Life-Threatening, Hospitalization, Other)
  Sender: FDA-Public Use
  Company Number: None

PATIENT
  Age: 71 Year
  Sex: Female
  Weight: 47.63 kg

DRUGS (3)
  1. AMPICILLIN [Suspect]
     Active Substance: AMPICILLIN
     Indication: URINARY TRACT INFECTION
     Route: 048
     Dates: start: 20171220, end: 20171225
  2. CANE [Concomitant]
  3. ROLLATOR [Concomitant]

REACTIONS (1)
  - Urinary retention [None]

NARRATIVE: CASE EVENT DATE: 20171221
